FAERS Safety Report 8832470 (Version 1)
Quarter: 2012Q4

REPORT INFORMATION
  Report Type: Spontaneous
  Country: US (occurrence: None)
  Receive Date: 20121005
  Receipt Date: 20121005
  Transmission Date: 20130627
  Serious: Yes (Hospitalization)
  Sender: FDA-Public Use
  Company Number: None

PATIENT
  Age: 50 Year
  Sex: Male
  Weight: 108.8 kg

DRUGS (2)
  1. GEMCITABINE [Suspect]
     Indication: CANCER
     Route: 042
     Dates: start: 20120810, end: 20120810
  2. OXALIPLATIN [Suspect]
     Indication: CANCER
     Route: 042
     Dates: start: 20120810, end: 20120810

REACTIONS (4)
  - Gout [None]
  - Pain [None]
  - Joint swelling [None]
  - Joint effusion [None]
